FAERS Safety Report 4348852-8 (Version None)
Quarter: 2004Q2

REPORT INFORMATION
  Report Type: 
  Country: None (occurrence: None)
  Receive Date: 20040423
  Receipt Date: 20040414
  Transmission Date: 20050107
  Serious: Yes (Death, Life-Threatening, Disabling, Other)
  Sender: FDA-Public Use
  Company Number: 2003JP006461

PATIENT
  Age: 63 Year
  Sex: Male
  Weight: 62 kg

DRUGS (16)
  1. PROGRAF [Suspect]
     Indication: MYASTHENIA GRAVIS
     Dosage: 3 MG, UID/QD, ORAL
     Route: 048
     Dates: start: 20030317, end: 20030615
  2. BISOPROLOL FUMARATE [Concomitant]
  3. ADALAT TABELT [Concomitant]
  4. ASPIRIN ^BAYER^ TABLET [Concomitant]
  5. SELBEX (TEPRENONE) CAPSULE [Concomitant]
  6. MEILAX (ETHYL LOFLAZEPATE) TABLET [Concomitant]
  7. PAXIL [Concomitant]
  8. MYSLEE TABLET [Concomitant]
  9. BESACOLIN (BETHANECHOL CHLORIDE) POWDER [Concomitant]
  10. EBRANTIL (URAPIDIL) TABLET [Concomitant]
  11. UBRETID TABLET [Concomitant]
  12. PURSENNID (SENNA LEAF) TABLET [Concomitant]
  13. LOXONIN (LOXOPREFOEN SODIUM) TABLET [Concomitant]
  14. PREDNISOLONE [Concomitant]
  15. HEPARIN SODIUM [Concomitant]
  16. SOLU-MEDROL [Concomitant]

REACTIONS (7)
  - ATRIAL FIBRILLATION [None]
  - BLOOD PRESSURE DECREASED [None]
  - BRAIN OEDEMA [None]
  - COMA [None]
  - CONVULSION [None]
  - ENCEPHALITIS [None]
  - HERPES ZOSTER [None]
